FAERS Safety Report 12498831 (Version 1)
Quarter: 2016Q2

REPORT INFORMATION
  Report Type: Spontaneous
  Country: US (occurrence: US)
  Receive Date: 20160627
  Receipt Date: 20160627
  Transmission Date: 20160815
  Serious: No
  Sender: FDA-Public Use
  Company Number: US-009507513-1606USA011254

PATIENT
  Age: 55 Year
  Sex: Male

DRUGS (1)
  1. INTRON A [Suspect]
     Active Substance: INTERFERON ALFA-2B
     Indication: FUNGAL INFECTION
     Dosage: UNK
     Route: 058

REACTIONS (2)
  - Depression [Unknown]
  - Anxiety [Unknown]
